FAERS Safety Report 14072632 (Version 1)
Quarter: 2017Q4

REPORT INFORMATION
  Report Type: Spontaneous
  Country: US (occurrence: US)
  Receive Date: 20171011
  Receipt Date: 20171011
  Transmission Date: 20180321
  Serious: Yes (Other)
  Sender: FDA-Public Use
  Company Number: None

PATIENT
  Age: 35 Year
  Sex: Female
  Weight: 93.15 kg

DRUGS (2)
  1. TRINESSA LO [Suspect]
     Active Substance: ETHINYL ESTRADIOL\NORGESTIMATE
     Indication: MENSTRUAL DISORDER
     Route: 048
     Dates: start: 20170727, end: 20170930
  2. FERROUS SULFATE (IRON) [Concomitant]

REACTIONS (8)
  - Hypertension [None]
  - Weight increased [None]
  - Headache [None]
  - Increased appetite [None]
  - Palpitations [None]
  - Anaemia [None]
  - Peripheral swelling [None]
  - Dizziness [None]

NARRATIVE: CASE EVENT DATE: 20171011
